FAERS Safety Report 22740254 (Version 3)
Quarter: 2023Q4

REPORT INFORMATION
  Report Type: Spontaneous
  Country: US (occurrence: US)
  Receive Date: 20230723
  Receipt Date: 20231208
  Transmission Date: 20240110
  Serious: Yes (Life-Threatening, Other)
  Sender: FDA-Public Use
  Company Number: US-BAXTER-2023BAX026540

PATIENT

DRUGS (2)
  1. NOREPINEPHRINE BITARTRATE [Suspect]
     Active Substance: NOREPINEPHRINE BITARTRATE
     Dosage: INFUSIONS THROUGH A SMALL-BORE PICC LINE
     Route: 041
  2. LEVOPHED [Suspect]
     Active Substance: NOREPINEPHRINE BITARTRATE
     Dosage: INFUSIONS THROUGH A SMALL-BORE PICC LINE
     Route: 042

REACTIONS (5)
  - Blood pressure decreased [Recovered/Resolved]
  - Device occlusion [Unknown]
  - Inappropriate schedule of product administration [Unknown]
  - Product contamination physical [Unknown]
  - Poor quality product administered [Unknown]
